FAERS Safety Report 9981069 (Version 1)
Quarter: 2014Q1

REPORT INFORMATION
  Report Type: Spontaneous
  Country: GB (occurrence: None)
  Receive Date: 20140305
  Receipt Date: 20140305
  Transmission Date: 20141002
  Serious: Yes (Hospitalization)
  Sender: FDA-Public Use
  Company Number: AUR-APL-2014-012179

PATIENT
  Sex: Male

DRUGS (1)
  1. MIRTAZAPINE (MIRTAZAPINE) [Suspect]
     Indication: BIPOLAR DISORDER
     Dates: start: 20130424

REACTIONS (2)
  - Priapism [None]
  - Ischaemia [None]
